FAERS Safety Report 7479023-4 (Version None)
Quarter: 2011Q2

REPORT INFORMATION
  Report Type: 
  Country: None (occurrence: None)
  Receive Date: 20110513
  Receipt Date: 20110315
  Transmission Date: 20111010
  Serious: Yes (Death, Hospitalization)
  Sender: FDA-Public Use
  Company Number: PHHY2011FR21042

PATIENT
  Sex: Female

DRUGS (15)
  1. MEMANTINE HYDROCHLORIDE [Suspect]
     Dosage: 20 MG DAILY
     Dates: start: 20110123
  2. OMEPRAZOLE [Suspect]
     Dosage: UNK
     Dates: end: 20110114
  3. ESCITALOPRAM [Suspect]
     Dosage: 15 MG DAILY
     Dates: start: 20110114
  4. ESCITALOPRAM [Suspect]
     Dosage: 15 MG DAILY
     Dates: start: 20110123
  5. SECTRAL [Concomitant]
     Dosage: UNK
     Dates: start: 20110123
  6. ALLOPURINOL [Suspect]
     Dosage: UNK
     Dates: end: 20110114
  7. AUGMENTIN '125' [Suspect]
     Indication: PNEUMONIA
     Dosage: 2 G, DAILY
     Dates: start: 20110110, end: 20110114
  8. MEMANTINE HYDROCHLORIDE [Suspect]
     Dosage: 20 MG DAILY
     Dates: start: 20110114
  9. EXELON [Suspect]
     Dosage: 4.6 MG, QD
     Route: 062
     Dates: start: 20110123
  10. EXELON [Suspect]
     Dosage: 4.6 MG, QD
     Route: 062
     Dates: end: 20110114
  11. SIMVASTATIN [Suspect]
     Dosage: UNK
     Dates: start: 20110114
  12. SIMVASTATIN [Suspect]
     Dosage: UNK
     Dates: start: 20110123
  13. ISOSORBIDE DINITRATE [Concomitant]
     Dosage: 1 DF, QD
     Route: 048
  14. ISOSORBIDE DINITRATE [Concomitant]
     Route: 048
  15. AMLODIPINE BESYLATE [Concomitant]
     Dosage: UNK
     Dates: start: 20110123

REACTIONS (15)
  - ATRIAL FIBRILLATION [None]
  - PSYCHOMOTOR HYPERACTIVITY [None]
  - CONFUSIONAL STATE [None]
  - PRODUCTIVE COUGH [None]
  - THROMBOCYTOPENIA [None]
  - DEHYDRATION [None]
  - DECREASED APPETITE [None]
  - PULMONARY EMBOLISM [None]
  - CYTOLYTIC HEPATITIS [None]
  - ABNORMAL BEHAVIOUR [None]
  - HYPERNATRAEMIA [None]
  - DELIRIUM [None]
  - LEUKOCYTOSIS [None]
  - PNEUMONIA [None]
  - DIET REFUSAL [None]
